FAERS Safety Report 6969649-6 (Version None)
Quarter: 2010Q3

REPORT INFORMATION
  Report Type: 
  Country: None (occurrence: None)
  Receive Date: 20100908
  Receipt Date: 20100820
  Transmission Date: 20110219
  Serious: Yes (Other)
  Sender: FDA-Public Use
  Company Number: US-RANBAXY-2010US-37509

PATIENT

DRUGS (1)
  1. IBUPROFEN [Suspect]
     Indication: ARTHRALGIA
     Dosage: 600MG 6 TO 8 HOURLY
     Route: 065

REACTIONS (2)
  - NEUTROPENIA [None]
  - WEIGHT DECREASED [None]
